FAERS Safety Report 6909811-1 (Version None)
Quarter: 2010Q3

REPORT INFORMATION
  Report Type: 
  Country: None (occurrence: None)
  Receive Date: 20100806
  Receipt Date: 20100729
  Transmission Date: 20110219
  Serious: Yes (Hospitalization)
  Sender: FDA-Public Use
  Company Number: US-BIOGENIDEC-2010BI021432

PATIENT
  Age: 54 Year
  Sex: Male
  Weight: 113 kg

DRUGS (4)
  1. TYSABRI [Suspect]
     Indication: MULTIPLE SCLEROSIS
     Route: 042
     Dates: start: 20100401
  2. PROZAC [Concomitant]
     Indication: DEPRESSION
     Dates: start: 20090101
  3. XANAX [Concomitant]
     Indication: DEPRESSION
     Dates: start: 20090101
  4. KLONEPIN [Concomitant]
     Indication: DEPRESSION
     Dates: start: 20090101

REACTIONS (7)
  - ATRIAL FIBRILLATION [None]
  - BACK PAIN [None]
  - BLOOD ELECTROLYTES DECREASED [None]
  - FALL [None]
  - HEART RATE INCREASED [None]
  - MEMORY IMPAIRMENT [None]
  - MUSCLE RUPTURE [None]
